FAERS Safety Report 18977998 (Version 1)
Quarter: 2021Q1

REPORT INFORMATION
  Report Type: Spontaneous
  Country: US (occurrence: US)
  Receive Date: 20210307
  Receipt Date: 20210307
  Transmission Date: 20210420
  Serious: No
  Sender: FDA-Public Use
  Company Number: US-ASTRAZENECA-2021A099200

PATIENT
  Sex: Male

DRUGS (1)
  1. CALQUENCE [Suspect]
     Active Substance: ACALABRUTINIB
     Indication: CHRONIC LYMPHOCYTIC LEUKAEMIA
     Route: 048

REACTIONS (6)
  - Dyspnoea exertional [Unknown]
  - Arthralgia [Unknown]
  - Dysphonia [Unknown]
  - Musculoskeletal chest pain [Unknown]
  - Flank pain [Unknown]
  - Product dose omission issue [Unknown]
